FAERS Safety Report 19051828 (Version 1)
Quarter: 2021Q1

REPORT INFORMATION
  Report Type: Spontaneous
  Country: RS (occurrence: RS)
  Receive Date: 20210324
  Receipt Date: 20210324
  Transmission Date: 20210420
  Serious: Yes (Death, Other)
  Sender: FDA-Public Use
  Company Number: RS-PFIZER INC-2021261952

PATIENT
  Age: 28 Year
  Sex: Female

DRUGS (1)
  1. ECALTA [Suspect]
     Active Substance: ANIDULAFUNGIN
     Indication: CANDIDA INFECTION
     Dosage: UNK

REACTIONS (3)
  - Abortion [Unknown]
  - Death [Fatal]
  - Exposure during pregnancy [Unknown]
